FAERS Safety Report 23586648 (Version 2)
Quarter: 2024Q1

REPORT INFORMATION
  Report Type: Report from Study
  Country: CA (occurrence: None)
  Receive Date: 20240301
  Receipt Date: 20240320
  Transmission Date: 20240410
  Serious: Yes (Hospitalization)
  Sender: FDA-Public Use
  Company Number: 2024A040715

PATIENT
  Sex: Male

DRUGS (7)
  1. TEZEPELUMAB [Suspect]
     Active Substance: TEZEPELUMAB
     Indication: Asthma
     Route: 058
     Dates: start: 20221216
  2. AZITHROMYCIN [Concomitant]
     Active Substance: AZITHROMYCIN
  3. VENTOLIN [Concomitant]
     Active Substance: ALBUTEROL SULFATE
     Dosage: QID
  4. XOLAIR [Concomitant]
     Active Substance: OMALIZUMAB
  5. PREDNISONE [Concomitant]
     Active Substance: PREDNISONE
     Dosage: 10MG DIE
  6. TRELEGY ELLIPTA [Concomitant]
     Active Substance: FLUTICASONE FUROATE\UMECLIDINIUM BROMIDE\VILANTEROL TRIFENATATE
     Dosage: 1 INH DIE
  7. SYMBICORT [Concomitant]
     Active Substance: BUDESONIDE\FORMOTEROL FUMARATE DIHYDRATE
     Dosage: 2 INHS BID

REACTIONS (1)
  - Hyponatraemia [Unknown]
